FAERS Safety Report 25502734 (Version 1)
Quarter: 2025Q3

REPORT INFORMATION
  Report Type: Spontaneous
  Country: EU (occurrence: EU)
  Receive Date: 20250702
  Receipt Date: 20250702
  Transmission Date: 20251021
  Serious: Yes (Disabling, Other)
  Sender: ASTELLAS
  Company Number: EU-ASTELLAS-2022US005108

PATIENT
  Age: 86 Year
  Sex: Male
  Weight: 68 kg

DRUGS (1)
  1. XTANDI [Suspect]
     Active Substance: ENZALUTAMIDE
     Indication: Prostate cancer
     Dosage: 160 MG (4X40 MG), ONCE DAILY
     Route: 065
     Dates: start: 20210728

REACTIONS (5)
  - Paralysis [Not Recovered/Not Resolved]
  - Demyelination [Unknown]
  - Muscular weakness [Not Recovered/Not Resolved]
  - Hypokinesia [Unknown]
  - Gait disturbance [Unknown]

NARRATIVE: CASE EVENT DATE: 20211210
